FAERS Safety Report 17711652 (Version 1)
Quarter: 2020Q2

REPORT INFORMATION
  Report Type: Spontaneous
  Country: JP (occurrence: JP)
  Receive Date: 20200427
  Receipt Date: 20200427
  Transmission Date: 20200714
  Serious: Yes (Other)
  Sender: FDA-Public Use
  Company Number: JP-MYLANLABS-2020M1041089

PATIENT
  Age: 27 Year
  Sex: Male

DRUGS (8)
  1. CICLOSPORIN [Suspect]
     Active Substance: CYCLOSPORINE
     Indication: ANHIDROSIS
     Route: 065
  2. LEVOCETIRIZINE [Suspect]
     Active Substance: LEVOCETIRIZINE
     Indication: ANHIDROSIS
     Route: 065
  3. GABAPENTIN. [Suspect]
     Active Substance: GABAPENTIN
     Indication: ANHIDROSIS
     Route: 065
  4. MONTELUKAST [Suspect]
     Active Substance: MONTELUKAST SODIUM
     Indication: ANHIDROSIS
     Route: 065
  5. LAFUTIDINE [Suspect]
     Active Substance: LAFUTIDINE
     Indication: ANHIDROSIS
     Route: 065
  6. METHYLPREDNISOLONE. [Suspect]
     Active Substance: METHYLPREDNISOLONE
     Indication: ANHIDROSIS
     Route: 065
  7. SAIREI-TO [Suspect]
     Active Substance: UNSPECIFIED INGREDIENT
     Indication: ANHIDROSIS
     Route: 065
  8. PREGABALIN. [Suspect]
     Active Substance: PREGABALIN
     Indication: ANHIDROSIS
     Route: 065

REACTIONS (1)
  - Drug ineffective [Unknown]
